FAERS Safety Report 9288275 (Version 4)
Quarter: 2013Q3

REPORT INFORMATION
  Report Type: Report from Study
  Country: IT (occurrence: IT)
  Receive Date: 20130514
  Receipt Date: 20130909
  Transmission Date: 20140515
  Serious: Yes (Hospitalization, Disabling)
  Sender: FDA-Public Use
  Company Number: PHHY2013IT046811

PATIENT
  Sex: Female
  Weight: 50 kg

DRUGS (10)
  1. CERTICAN [Suspect]
     Indication: IMMUNOSUPPRESSION
     Dosage: 1.25 MG, DAILY
     Route: 048
     Dates: start: 20070423
  2. LASIX [Concomitant]
     Dosage: 0.4 DF, UNK
  3. CARDIOASPIRIN [Concomitant]
     Dosage: 100 MG
  4. VALPRESSION [Concomitant]
     Dosage: 1 DF, UNK
  5. KANRENOL [Concomitant]
     Dosage: 0.5 DF, UNK
  6. NEORAL [Concomitant]
     Dosage: 20 MG
  7. SPIRIVA [Concomitant]
     Dosage: 1 DF, UNK
  8. FUROSEMIDE [Concomitant]
     Indication: DIURETIC THERAPY
     Dosage: 125 MG, BID
     Dates: start: 20110404
  9. VIAGRA [Concomitant]
     Indication: VASODILATATION
     Dosage: UNK UKN, UNK
     Dates: start: 20110404
  10. LANSOPRAZOLE [Concomitant]
     Indication: GASTROOESOPHAGEAL REFLUX DISEASE
     Dosage: UNK UKN, UNK
     Dates: start: 20110404

REACTIONS (7)
  - Asthenia [Not Recovered/Not Resolved]
  - Palpitations [Not Recovered/Not Resolved]
  - Dyspnoea [Not Recovered/Not Resolved]
  - Pulmonary hypertension [Unknown]
  - Cardiac index decreased [Unknown]
  - Weight decreased [Unknown]
  - Pain [Not Recovered/Not Resolved]
